FAERS Safety Report 5645494-9 (Version None)
Quarter: 2008Q1

REPORT INFORMATION
  Report Type: 
  Country: None (occurrence: None)
  Receive Date: 20080229
  Receipt Date: 20071212
  Transmission Date: 20080703
  Serious: No
  Sender: FDA-Public Use
  Company Number: US-BRISTOL-MYERS SQUIBB COMPANY-14012082

PATIENT
  Age: 81 Year
  Sex: Female
  Weight: 68 kg

DRUGS (5)
  1. TAXOL [Suspect]
     Indication: OVARIAN CANCER
     Dates: start: 20020101
  2. CARBOPLATIN [Suspect]
     Indication: OVARIAN CANCER
     Dosage: RECEIVED 4-5 DOSES
     Dates: start: 20020101
  3. NORVASC [Concomitant]
  4. ENALAPRIL MALEATE [Concomitant]
  5. FOSAMAX [Concomitant]

REACTIONS (2)
  - COGNITIVE DISORDER [None]
  - NEUROPATHY PERIPHERAL [None]
